FAERS Safety Report 6995070 (Version 2)
Quarter: 2014Q1

REPORT INFORMATION
  Report Type: Spontaneous
  Country: US (occurrence: None)
  Receive Date: 20090507
  Receipt Date: 20140107
  Transmission Date: 20141002
  Serious: Yes (Hospitalization)
  Sender: FDA-Public Use
  Company Number: 2009S1003659

PATIENT
  Sex: Female

DRUGS (2)
  1. SODIUM PHOSPHATE, DIBASIC [Suspect]
     Indication: COLONOSCOPY
     Dosage: PO
     Route: 048
     Dates: start: 20060420, end: 20060420
  2. ANTIHYPERTENSIVES [Concomitant]

REACTIONS (3)
  - Renal failure [None]
  - Dyspnoea [None]
  - Chest pain [None]
